FAERS Safety Report 26019769 (Version 1)
Quarter: 2025Q4

REPORT INFORMATION
  Report Type: Report from Study
  Country: US (occurrence: None)
  Receive Date: 20251110
  Receipt Date: 20251110
  Transmission Date: 20260118
  Serious: Yes (Other)
  Sender: UCB
  Company Number: US-UCBSA-2025063398

PATIENT
  Age: 26 Year
  Weight: 40.8 kg

DRUGS (13)
  1. FENFLURAMINE [Suspect]
     Active Substance: FENFLURAMINE
     Indication: Severe myoclonic epilepsy of infancy
     Dosage: 7 MILLILITER, 2X/DAY (BID)
  2. FENFLURAMINE [Suspect]
     Active Substance: FENFLURAMINE
     Dosage: 0.7 MILLIGRAM/KILOGRAM/DAY, 30.8 MILLIGRAM/DAY
  3. Epldlolex [Concomitant]
     Indication: Seizure
     Dosage: UNK
  4. DIVALPROEX SODIUM [Concomitant]
     Active Substance: DIVALPROEX SODIUM
     Indication: Product used for unknown indication
     Dosage: 1 CAP (125 MG) EVERY MORNING, 2 CAP (250 MG) EVERY EVENING, AND 2 CAP (250 MG) AT BEDTIME
  5. TRAZODONE [Concomitant]
     Active Substance: TRAZODONE HYDROCHLORIDE
     Indication: Postictal state
     Dosage: 50 MILLIGRAM, 2X/DAY (BID)
  6. CLONAZEPAM [Concomitant]
     Active Substance: CLONAZEPAM
     Indication: Seizure
     Dosage: 0.5 MILLIGRAM, 2X/DAY (BID)
  7. HERBALS\TETRAHYDROCANNABINOL UNSPECIFIED [Concomitant]
     Active Substance: HERBALS\TETRAHYDROCANNABINOL UNSPECIFIED
     Indication: Behaviour disorder
     Dosage: UNK
  8. PROGESTERONE [Concomitant]
     Active Substance: PROGESTERONE
     Indication: Product used for unknown indication
     Dosage: 200 MILLIGRAM, ONCE DAILY (QD)
  9. BENZONATATE [Concomitant]
     Active Substance: BENZONATATE
     Indication: Product used for unknown indication
     Dosage: 200 MILLIGRAM, 3X/DAY (TID)
  10. VITAMIN D3 [Concomitant]
     Active Substance: CHOLECALCIFEROL
     Indication: Product used for unknown indication
     Dosage: 125 MICROGRAM, 2X/WEEK
  11. T-RELIEF CBD+13 SL [Concomitant]
     Indication: Product used for unknown indication
     Dosage: 30 MILLIGRAM
  12. MULTI-VITAMIN DAILY [Concomitant]
     Indication: Product used for unknown indication
     Dosage: 1 DOSAGE FORM, ONCE DAILY (QD)
  13. B-2 [Concomitant]
     Indication: Product used for unknown indication
     Dosage: 100 MILLIGRAM, ONCE DAILY (QD)

REACTIONS (3)
  - Mitral valve thickening [Not Recovered/Not Resolved]
  - Off label use [Unknown]
  - Prescribed overdose [Unknown]
